FAERS Safety Report 15314755 (Version 1)
Quarter: 2018Q3

REPORT INFORMATION
  Report Type: Spontaneous
  Country: US (occurrence: US)
  Receive Date: 20180815
  Receipt Date: 20180815
  Transmission Date: 20181010
  Serious: Yes (Hospitalization)
  Sender: FDA-Public Use
  Company Number: None

PATIENT
  Age: 39 Year
  Sex: Female
  Weight: 57.6 kg

DRUGS (10)
  1. BUDESONIDE. [Concomitant]
     Active Substance: BUDESONIDE
  2. INFLIXIMAB [Concomitant]
     Active Substance: INFLIXIMAB
  3. L?GLUTAMINE [Concomitant]
  4. OMEGA?3 FATTY ACID/FISH OIL [Concomitant]
  5. CYANOCOBALAMIN. [Concomitant]
     Active Substance: CYANOCOBALAMIN
  6. REMICADE [Suspect]
     Active Substance: INFLIXIMAB
  7. ASCORBIC ACID. [Concomitant]
     Active Substance: ASCORBIC ACID
  8. AZATHIOPRINE. [Concomitant]
     Active Substance: AZATHIOPRINE
  9. MULTIVITAMIN [Concomitant]
     Active Substance: VITAMINS
  10. LACTOBACILLUS RHAMNOSUS [Concomitant]
     Active Substance: LACTOBACILLUS RHAMNOSUS

REACTIONS (5)
  - Sepsis [None]
  - Diarrhoea [None]
  - Pain [None]
  - Abdominal pain lower [None]
  - Asthenia [None]

NARRATIVE: CASE EVENT DATE: 20180210
